FAERS Safety Report 10398408 (Version 1)
Quarter: 2014Q3

REPORT INFORMATION
  Report Type: Spontaneous
  Country: US (occurrence: US)
  Receive Date: 20140821
  Receipt Date: 20140821
  Transmission Date: 20150326
  Serious: No
  Sender: FDA-Public Use
  Company Number: US-BAYER-2014-124978

PATIENT
  Age: 88 Year
  Sex: Female
  Weight: 64.85 kg

DRUGS (2)
  1. ALEVE [Suspect]
     Active Substance: NAPROXEN SODIUM
     Indication: INFLAMMATION
     Dosage: 1 DF, PRN
     Route: 048
     Dates: start: 20140817
  2. ALEVE [Suspect]
     Active Substance: NAPROXEN SODIUM
     Indication: TRIGGER FINGER

REACTIONS (1)
  - Intentional product misuse [None]

NARRATIVE: CASE EVENT DATE: 20140817
